FAERS Safety Report 5200032-X (Version None)
Quarter: 2007Q1

REPORT INFORMATION
  Report Type: 
  Country: None (occurrence: None)
  Receive Date: 20070105
  Receipt Date: 20061226
  Transmission Date: 20070707
  Serious: Yes (Other)
  Sender: FDA-Public Use
  Company Number: US-AMGEN-US203237

PATIENT
  Sex: Male

DRUGS (9)
  1. ENBREL [Suspect]
     Indication: PSORIASIS
     Route: 058
     Dates: start: 20061120
  2. ALTACE [Concomitant]
     Route: 065
     Dates: start: 20061101
  3. HUMALOG [Concomitant]
     Route: 065
     Dates: start: 20061101
  4. LANTUS [Concomitant]
     Route: 065
     Dates: start: 20061101
  5. FOLTX [Concomitant]
     Route: 065
  6. TOPROL-XL [Concomitant]
     Route: 065
     Dates: start: 20061101
  7. ZOCOR [Concomitant]
     Route: 065
     Dates: start: 20061101
  8. COENZYME Q10 [Concomitant]
     Route: 065
     Dates: start: 20061101
  9. XANAX [Concomitant]
     Route: 065
     Dates: start: 20061101

REACTIONS (1)
  - RETINAL TEAR [None]
